FAERS Safety Report 18800423 (Version 1)
Quarter: 2021Q1

REPORT INFORMATION
  Report Type: Spontaneous
  Country: KR (occurrence: KR)
  Receive Date: 20210128
  Receipt Date: 20210128
  Transmission Date: 20210419
  Serious: Yes (Hospitalization)
  Sender: FDA-Public Use
  Company Number: KR-ROCHE-2758827

PATIENT
  Age: 47 Year
  Sex: Female

DRUGS (24)
  1. TRETINOIN. [Suspect]
     Active Substance: TRETINOIN
     Indication: PRODUCT USED FOR UNKNOWN INDICATION
     Route: 065
     Dates: start: 20190313, end: 20190819
  2. CYMEVENE [Suspect]
     Active Substance: GANCICLOVIR
     Route: 065
     Dates: start: 20201218
  3. CYMEVENE [Suspect]
     Active Substance: GANCICLOVIR
     Route: 065
     Dates: start: 20210101
  4. DEXAMETHASONE. [Suspect]
     Active Substance: DEXAMETHASONE
     Indication: PRODUCT USED FOR UNKNOWN INDICATION
     Route: 065
     Dates: start: 20170514, end: 20171011
  5. IDARUBICIN [Suspect]
     Active Substance: IDARUBICIN
     Indication: PRODUCT USED FOR UNKNOWN INDICATION
     Route: 065
     Dates: start: 20190313, end: 20190819
  6. CYMEVENE [Suspect]
     Active Substance: GANCICLOVIR
     Route: 065
     Dates: start: 20201124
  7. CYMEVENE [Suspect]
     Active Substance: GANCICLOVIR
     Route: 065
     Dates: start: 20201222
  8. CYCLOPHOSPHAMIDE. [Suspect]
     Active Substance: CYCLOPHOSPHAMIDE
     Indication: B-CELL LYMPHOMA
     Route: 065
     Dates: start: 20151023, end: 20160203
  9. ARAVA [Suspect]
     Active Substance: LEFLUNOMIDE
     Indication: PRODUCT USED FOR UNKNOWN INDICATION
     Route: 065
     Dates: start: 20201222
  10. CYMEVENE [Suspect]
     Active Substance: GANCICLOVIR
     Route: 065
     Dates: start: 20201225
  11. GAZYVA [Suspect]
     Active Substance: OBINUTUZUMAB
     Indication: B-CELL LYMPHOMA RECURRENT
     Route: 042
     Dates: start: 20200506, end: 20200817
  12. AMBISOME [Concomitant]
     Active Substance: AMPHOTERICIN B
     Dates: start: 20210108
  13. CYMEVENE [Suspect]
     Active Substance: GANCICLOVIR
     Route: 065
     Dates: start: 20201211
  14. PREDNISONE. [Suspect]
     Active Substance: PREDNISONE
     Indication: B-CELL LYMPHOMA
     Route: 065
     Dates: start: 20151023, end: 20160203
  15. VINCRISTINE [Suspect]
     Active Substance: VINCRISTINE
     Indication: B-CELL LYMPHOMA
     Route: 065
     Dates: start: 20151023, end: 20160203
  16. CIDOFOVIR. [Concomitant]
     Active Substance: CIDOFOVIR
     Dates: start: 20201110, end: 20201117
  17. VALCYTE [Concomitant]
     Active Substance: VALGANCICLOVIR HYDROCHLORIDE
     Route: 065
     Dates: start: 20200928
  18. CYMEVENE [Suspect]
     Active Substance: GANCICLOVIR
     Indication: CYTOMEGALOVIRUS INFECTION
     Route: 065
     Dates: start: 20201105, end: 20201109
  19. BENDAMUSTINE [Suspect]
     Active Substance: BENDAMUSTINE
     Indication: B-CELL LYMPHOMA RECURRENT
     Route: 065
     Dates: start: 20200506, end: 20200817
  20. RITUXIMAB. [Suspect]
     Active Substance: RITUXIMAB
     Indication: B-CELL LYMPHOMA
     Route: 065
     Dates: start: 20151023, end: 20160629
  21. FOSCAVIR [Concomitant]
     Active Substance: FOSCARNET SODIUM
     Dates: start: 20201124
  22. CYMEVENE [Suspect]
     Active Substance: GANCICLOVIR
     Route: 065
     Dates: start: 20201205
  23. FLUDARABINE [Suspect]
     Active Substance: FLUDARABINE PHOSPHATE
     Indication: PRODUCT USED FOR UNKNOWN INDICATION
     Route: 065
     Dates: start: 20170514, end: 20171011
  24. MITOXANTRONE [Suspect]
     Active Substance: MITOXANTRONE HYDROCHLORIDE
     Indication: PRODUCT USED FOR UNKNOWN INDICATION
     Route: 065
     Dates: start: 20170514, end: 20171011

REACTIONS (7)
  - Cytomegalovirus infection [Not Recovered/Not Resolved]
  - Cytomegalovirus chorioretinitis [Unknown]
  - Pneumonia cytomegaloviral [Unknown]
  - Cytomegalovirus colitis [Unknown]
  - Pyrexia [Unknown]
  - Nausea [Unknown]
  - Dyspnoea [Not Recovered/Not Resolved]

NARRATIVE: CASE EVENT DATE: 20201223
